FAERS Safety Report 17835811 (Version 1)
Quarter: 2020Q2

REPORT INFORMATION
  Report Type: Spontaneous
  Country: US (occurrence: US)
  Receive Date: 20200528
  Receipt Date: 20200528
  Transmission Date: 20200714
  Serious: No
  Sender: FDA-Public Use
  Company Number: US-AMNEAL PHARMACEUTICALS-2020-AMRX-01226

PATIENT
  Sex: Female

DRUGS (1)
  1. ESTRADIOL TRANSDERMAL SYSTEM [Suspect]
     Active Substance: ESTRADIOL
     Indication: HORMONE REPLACEMENT THERAPY
     Dosage: 0.05 MILLIGRAM, 2 /WEEK
     Route: 065
     Dates: start: 20200420

REACTIONS (4)
  - Product adhesion issue [Unknown]
  - Application site pruritus [Recovering/Resolving]
  - Product packaging quantity issue [Unknown]
  - Application site urticaria [Recovering/Resolving]

NARRATIVE: CASE EVENT DATE: 20200420
